FAERS Safety Report 17373716 (Version 2)
Quarter: 2020Q1

REPORT INFORMATION
  Report Type: Report from Study
  Country: US (occurrence: US)
  Receive Date: 20200205
  Receipt Date: 20200305
  Transmission Date: 20200409
  Serious: No
  Sender: FDA-Public Use
  Company Number: NVSC2019US043455

PATIENT
  Sex: Male

DRUGS (4)
  1. BEOVU [Suspect]
     Active Substance: BROLUCIZUMAB-DBLL
     Indication: MACULAR DEGENERATION
     Dosage: UNK
     Route: 047
  2. BEOVU [Suspect]
     Active Substance: BROLUCIZUMAB-DBLL
     Dosage: UNK UNK, UNKNOWN
     Route: 048
     Dates: start: 20200219
  3. BEOVU [Suspect]
     Active Substance: BROLUCIZUMAB-DBLL
     Dosage: UNK
     Route: 047
     Dates: start: 20191106
  4. BEOVU [Suspect]
     Active Substance: BROLUCIZUMAB-DBLL
     Dosage: (EVERY 30 DAYS)
     Route: 047

REACTIONS (6)
  - Eye irritation [Unknown]
  - Memory impairment [Unknown]
  - Ocular discomfort [Unknown]
  - Cough [Unknown]
  - Sinus disorder [Unknown]
  - Vitreous floaters [Unknown]
